FAERS Safety Report 23518830 (Version 2)
Quarter: 2024Q2

REPORT INFORMATION
  Report Type: Spontaneous
  Country: FR (occurrence: FR)
  Receive Date: 20240213
  Receipt Date: 20240402
  Transmission Date: 20240716
  Serious: Yes (Other)
  Sender: FDA-Public Use
  Company Number: FR-BIOGARAN-B24000139

PATIENT
  Age: 43 Year
  Sex: Female

DRUGS (1)
  1. BUPRENORPHINE [Suspect]
     Active Substance: BUPRENORPHINE
     Indication: Product used for unknown indication
     Dosage: UNK
     Route: 051

REACTIONS (4)
  - Skin necrosis [Unknown]
  - Lymphatic obstruction [Unknown]
  - Intentional product misuse [Unknown]
  - Intentional product use issue [Unknown]
